FAERS Safety Report 11455038 (Version 2)
Quarter: 2015Q3

REPORT INFORMATION
  Report Type: Spontaneous
  Country: JP (occurrence: JP)
  Receive Date: 20150903
  Receipt Date: 20150916
  Transmission Date: 20151125
  Serious: Yes (Other)
  Sender: FDA-Public Use
  Company Number: PHJP2015JP015207

PATIENT
  Age: 84 Year
  Sex: Female

DRUGS (2)
  1. ZOMETA [Suspect]
     Active Substance: ZOLEDRONIC ACID
     Indication: BREAST CANCER METASTATIC
  2. ZOMETA [Suspect]
     Active Substance: ZOLEDRONIC ACID
     Indication: METASTASES TO BONE
     Dosage: TOTAL DOSE 8 MG FOR 2 MONTHS
     Route: 042

REACTIONS (9)
  - Osteomyelitis [Recovering/Resolving]
  - Osteosclerosis [Recovering/Resolving]
  - Osteolysis [Recovering/Resolving]
  - Pain in jaw [Unknown]
  - Primary sequestrum [Recovering/Resolving]
  - Mouth swelling [Recovering/Resolving]
  - Exposed bone in jaw [Recovering/Resolving]
  - Sinusitis [Recovering/Resolving]
  - Gingival abscess [Recovering/Resolving]
